FAERS Safety Report 11012105 (Version 2)
Quarter: 2015Q2

REPORT INFORMATION
  Report Type: Spontaneous
  Country: US (occurrence: US)
  Receive Date: 20150410
  Receipt Date: 20150525
  Transmission Date: 20150821
  Serious: No
  Sender: FDA-Public Use
  Company Number: US-JNJFOC-20120306784

PATIENT
  Age: 45 Year
  Sex: Male
  Weight: 88 kg

DRUGS (10)
  1. PHENYLEPHRINE [Concomitant]
     Active Substance: PHENYLEPHRINE\PHENYLEPHRINE HYDROCHLORIDE
     Indication: HYPERSENSITIVITY
     Route: 065
     Dates: start: 20120309
  2. TYLENOL [Concomitant]
     Active Substance: ACETAMINOPHEN
     Route: 065
  3. ASACOL [Concomitant]
     Active Substance: MESALAMINE
     Route: 065
     Dates: start: 20120309
  4. CALCIUM/VIT D [Concomitant]
     Route: 065
     Dates: start: 20120309
  5. CHLORPHENIRAMINE [Concomitant]
     Active Substance: CHLORPHENIRAMINE
     Indication: HYPERSENSITIVITY
     Route: 065
     Dates: start: 20120309
  6. REMICADE [Suspect]
     Active Substance: INFLIXIMAB
     Indication: CROHN^S DISEASE
     Route: 042
  7. ACETAMINOPHEN. [Concomitant]
     Active Substance: ACETAMINOPHEN
     Indication: PREMEDICATION
     Route: 048
  8. MULTIVITAMINES [Concomitant]
     Active Substance: VITAMINS
     Route: 065
  9. DIPHENHYDRAMINE [Concomitant]
     Active Substance: DIPHENHYDRAMINE
     Indication: PREMEDICATION
     Route: 048
  10. REMICADE [Suspect]
     Active Substance: INFLIXIMAB
     Indication: CROHN^S DISEASE
     Route: 042
     Dates: start: 20120309

REACTIONS (4)
  - Chest pain [Recovered/Resolved]
  - Infusion related reaction [Recovered/Resolved]
  - Erythema [Recovered/Resolved]
  - Lacrimation increased [Recovered/Resolved]

NARRATIVE: CASE EVENT DATE: 20120309
